FAERS Safety Report 8970610 (Version 2)
Quarter: 2013Q1

REPORT INFORMATION
  Report Type: Spontaneous
  Country: US (occurrence: US)
  Receive Date: 20121218
  Receipt Date: 20130228
  Transmission Date: 20140127
  Serious: No
  Sender: FDA-Public Use
  Company Number: US-BAYER-2012-131924

PATIENT
  Age: 19 Year
  Sex: Female

DRUGS (2)
  1. BEYAZ [Suspect]
     Indication: MENSTRUAL CYCLE MANAGEMENT
     Route: 048
  2. BEYAZ [Suspect]
     Indication: CONTRACEPTION

REACTIONS (3)
  - Off label use [None]
  - Diarrhoea [Recovered/Resolved]
  - Drug dose omission [None]
